FAERS Safety Report 15596289 (Version 1)
Quarter: 2018Q4

REPORT INFORMATION
  Report Type: Spontaneous
  Country: ES (occurrence: ES)
  Receive Date: 20181107
  Receipt Date: 20181107
  Transmission Date: 20190205
  Serious: Yes (Other)
  Sender: FDA-Public Use
  Company Number: PHHY2018ES148506

PATIENT
  Age: 80 Year
  Sex: Male

DRUGS (3)
  1. LEUPRORELIN [Concomitant]
     Active Substance: LEUPROLIDE ACETATE
     Indication: PROSTATE CANCER
     Route: 065
  2. BICALUTAMIDE. [Concomitant]
     Active Substance: BICALUTAMIDE
     Indication: PROSTATE CANCER
     Route: 065
  3. ZOLEDRONIC ACID [Suspect]
     Active Substance: ZOLEDRONIC ACID
     Indication: PRODUCT USED FOR UNKNOWN INDICATION
     Dosage: CUMULATIVE DOSE OF 116 MG IN 29 MONTHS
     Route: 042
     Dates: start: 201311

REACTIONS (2)
  - Renal failure [Recovering/Resolving]
  - Fanconi syndrome acquired [Recovered/Resolved]
